FAERS Safety Report 7096702-1 (Version None)
Quarter: 2010Q4

REPORT INFORMATION
  Report Type: 
  Country: None (occurrence: None)
  Receive Date: 20101111
  Receipt Date: 20091015
  Transmission Date: 20110411
  Serious: No
  Sender: FDA-Public Use
  Company Number: US-KINGPHARMUSA00001-K200901281

PATIENT
  Sex: Male

DRUGS (2)
  1. SILVADENE [Suspect]
     Indication: THERMAL BURN
     Dosage: UNK
     Route: 061
     Dates: start: 20091013
  2. VICODIN [Concomitant]
     Indication: PAIN
     Dosage: UNK
     Dates: start: 20091013

REACTIONS (2)
  - ACCIDENTAL EXPOSURE [None]
  - EYE IRRITATION [None]
